FAERS Safety Report 5687892-3 (Version None)
Quarter: 2008Q1

REPORT INFORMATION
  Report Type: 
  Country: None (occurrence: None)
  Receive Date: 20080328
  Receipt Date: 20061005
  Transmission Date: 20080703
  Serious: Yes (Other)
  Sender: FDA-Public Use
  Company Number: US-BAYER-US-2005-015683

PATIENT
  Age: 33 Year
  Sex: Female
  Weight: 60 kg

DRUGS (2)
  1. MIRENA [Suspect]
     Indication: CONTRACEPTION
     Route: 015
     Dates: start: 20050101
  2. ALESSE [Concomitant]
     Indication: ORAL CONTRACEPTION
     Route: 048
     Dates: start: 20050701, end: 20060101

REACTIONS (7)
  - COMPLICATION OF DEVICE REMOVAL [None]
  - FATIGUE [None]
  - IUCD COMPLICATION [None]
  - MENORRHAGIA [None]
  - PROCEDURAL PAIN [None]
  - UTERINE RUPTURE [None]
  - VERTIGO [None]
